FAERS Safety Report 5035765-1 (Version None)
Quarter: 2006Q2

REPORT INFORMATION
  Report Type: 
  Country: None (occurrence: None)
  Receive Date: 20060622
  Receipt Date: 20060615
  Transmission Date: 20061013
  Serious: Yes (Other)
  Sender: FDA-Public Use
  Company Number: 200612123BCC

PATIENT
  Age: 92 Year
  Sex: Female
  Weight: 44.9061 kg

DRUGS (2)
  1. MILK OF MAGNESIA TAB [Suspect]
     Indication: CONSTIPATION
     Dosage: QOD, ORAL
     Route: 048
     Dates: start: 20020101
  2. STOOL SOFTENER [Concomitant]

REACTIONS (2)
  - DRUG INEFFECTIVE [None]
  - HAEMATOCHEZIA [None]
